FAERS Safety Report 17017945 (Version 2)
Quarter: 2021Q2

REPORT INFORMATION
  Report Type: Spontaneous
  Country: US (occurrence: US)
  Receive Date: 20191111
  Receipt Date: 20210402
  Transmission Date: 20210716
  Serious: Yes (Hospitalization, Other)
  Sender: FDA-Public Use
  Company Number: US-009507513-1911USA002541

PATIENT
  Age: 79 Year
  Sex: Male
  Weight: 84.8 kg

DRUGS (1)
  1. KEYTRUDA [Suspect]
     Active Substance: PEMBROLIZUMAB
     Dosage: UNK
     Dates: end: 20190314

REACTIONS (4)
  - Acute respiratory failure [Recovering/Resolving]
  - Immune-mediated lung disease [Recovering/Resolving]
  - Atrial fibrillation [Unknown]
  - Hypoxia [Recovering/Resolving]

NARRATIVE: CASE EVENT DATE: 20190429
